FAERS Safety Report 4629684-X (Version None)
Quarter: 2005Q2

REPORT INFORMATION
  Report Type: 
  Country: None (occurrence: None)
  Receive Date: 20050407
  Receipt Date: 20050316
  Transmission Date: 20051028
  Serious: Yes (Death)
  Sender: FDA-Public Use
  Company Number: 2005046958

PATIENT
  Age: 11 Month
  Sex: Female

DRUGS (2)
  1. PREDNISONE [Suspect]
     Indication: HISTIOCYTOSIS HAEMATOPHAGIC
  2. SOLU-MEDROL [Suspect]
     Indication: DEMYELINATION
     Dosage: PULSE THERAPY

REACTIONS (4)
  - BRAIN OEDEMA [None]
  - CONVULSION [None]
  - DEPRESSED LEVEL OF CONSCIOUSNESS [None]
  - RESPIRATORY DISORDER [None]
